FAERS Safety Report 17005114 (Version 2)
Quarter: 2020Q1

REPORT INFORMATION
  Report Type: Spontaneous
  Country: US (occurrence: US)
  Receive Date: 20191107
  Receipt Date: 20200106
  Transmission Date: 20200409
  Serious: No
  Sender: FDA-Public Use
  Company Number: US-BAUSCH-BL-2019-059920

PATIENT
  Age: 76 Year
  Sex: Male
  Weight: 77.18 kg

DRUGS (3)
  1. LATANOPROST OPHTHALMIC SOLUTION 0.005% [Suspect]
     Active Substance: LATANOPROST
     Indication: GLAUCOMA
     Dosage: A FEW MONTHS AGO, ONE DROP IN EACH EYE
     Route: 047
     Dates: start: 2019, end: 201910
  2. LATANOPROST OPHTHALMIC SOLUTION 0.005% [Suspect]
     Active Substance: LATANOPROST
     Dosage: ONE DROP IN EACH EYE
     Route: 047
     Dates: start: 20191027, end: 201910
  3. LATANOPROST OPHTHALMIC SOLUTION 0.005% [Suspect]
     Active Substance: LATANOPROST
     Dosage: ONE DROP IN EACH EYE
     Route: 047
     Dates: start: 201910

REACTIONS (3)
  - Eye pain [Recovered/Resolved]
  - Product quality issue [Unknown]
  - Product label issue [Unknown]

NARRATIVE: CASE EVENT DATE: 20191027
